FAERS Safety Report 10389933 (Version 1)
Quarter: 2014Q1

REPORT INFORMATION
  Report Type: Spontaneous
  Country: US (occurrence: None)
  Receive Date: 20140306
  Receipt Date: 20140306
  Transmission Date: 20141002
  Serious: Yes (Other)
  Sender: FDA-Public Use
  Company Number: 163-21880-13012641

PATIENT
  Age: 90 Year
  Sex: Female

DRUGS (1)
  1. REVLIMID (LENALIDOMIDE) (5 MILLIGRAM, CAPSULES) [Suspect]
     Indication: PLASMA CELL MYELOMA
     Route: 048
     Dates: start: 201106

REACTIONS (5)
  - Syncope [None]
  - Coordination abnormal [None]
  - Dyspnoea [None]
  - Increased tendency to bruise [None]
  - Nasopharyngitis [None]
